FAERS Safety Report 4678197-8 (Version None)
Quarter: 2005Q2

REPORT INFORMATION
  Report Type: 
  Country: None (occurrence: None)
  Receive Date: 20050527
  Receipt Date: 20050519
  Transmission Date: 20051028
  Serious: Yes (Hospitalization)
  Sender: FDA-Public Use
  Company Number: MK200505-0231-1

PATIENT
  Age: 62 Year
  Sex: Male

DRUGS (3)
  1. ANAFRANIL [Suspect]
     Indication: DEPRESSION
     Dosage: 160MG, DAILY
     Dates: start: 20040318
  2. TEGRETOL, STRENGTH NOT PROVIDED [Suspect]
     Indication: CONVULSION
     Dosage: 800MG, DAILY
     Dates: start: 20040318
  3. LEXOTAN [Concomitant]

REACTIONS (7)
  - ASTERIXIS [None]
  - CEREBRAL INFARCTION [None]
  - DEPRESSED LEVEL OF CONSCIOUSNESS [None]
  - DIZZINESS [None]
  - DRUG TOXICITY [None]
  - FALL [None]
  - SPEECH DISORDER [None]
